FAERS Safety Report 8329175-9 (Version None)
Quarter: 2012Q2

REPORT INFORMATION
  Report Type: 
  Country: None (occurrence: None)
  Receive Date: 20120502
  Receipt Date: 20120418
  Transmission Date: 20120825
  Serious: Yes (Hospitalization)
  Sender: FDA-Public Use
  Company Number: CN-JNJFOC-20110600608

PATIENT
  Sex: Male
  Weight: 60 kg

DRUGS (2)
  1. SPORANOX [Suspect]
     Indication: TINEA INFECTION
     Route: 048
     Dates: start: 20110530, end: 20110531
  2. SPORANOX [Suspect]
     Indication: ONYCHOMYCOSIS
     Route: 048
     Dates: start: 20110530, end: 20110531

REACTIONS (1)
  - VIITH NERVE PARALYSIS [None]
